FAERS Safety Report 14997264 (Version 2)
Quarter: 2018Q2

REPORT INFORMATION
  Report Type: Spontaneous
  Country: US (occurrence: US)
  Receive Date: 20180611
  Receipt Date: 20180621
  Transmission Date: 20180711
  Serious: No
  Sender: FDA-Public Use
  Company Number: US-PFIZER INC-2018233898

PATIENT
  Age: 52 Year
  Sex: Male

DRUGS (2)
  1. SUTENT [Suspect]
     Active Substance: SUNITINIB MALATE
     Dosage: 25 MG, DAILY (CONTINUOUSLY-INGEST BY EMPTYING CAPSULE INTO APPLESAUCE AND EATING THAT SMALL AMOUNT)
     Route: 048
     Dates: start: 20180607
  2. SUTENT [Suspect]
     Active Substance: SUNITINIB MALATE
     Indication: GASTROINTESTINAL STROMAL TUMOUR
     Dosage: 12.5 MG, DAILY (FOR THE FIRST 5 DAYS)
     Route: 048
     Dates: start: 20180602, end: 20180606

REACTIONS (7)
  - Hypotension [Unknown]
  - Depression [Unknown]
  - Condition aggravated [Unknown]
  - Flatulence [Unknown]
  - Wrong technique in product usage process [Unknown]
  - Abdominal distension [Unknown]
  - White blood cell disorder [Unknown]

NARRATIVE: CASE EVENT DATE: 201806
